FAERS Safety Report 7640064 (Version 3)
Quarter: 2013Q1

REPORT INFORMATION
  Report Type: Spontaneous
  Country: JP (occurrence: JP)
  Receive Date: 20101026
  Receipt Date: 20130304
  Transmission Date: 20140127
  Serious: Yes (Death)
  Sender: FDA-Public Use
  Company Number: JP-MEDIMMUNE-MEDI-0011645

PATIENT
  Age: 9 Month
  Sex: Male

DRUGS (9)
  1. SYNAGIS [Suspect]
     Indication: ANTIVIRAL PROPHYLAXIS
     Route: 030
     Dates: start: 20091009, end: 20091009
  2. SYNAGIS [Suspect]
     Indication: ANTIVIRAL PROPHYLAXIS
     Route: 030
     Dates: start: 20091106, end: 20091106
  3. SYNAGIS [Suspect]
     Indication: ANTIVIRAL PROPHYLAXIS
     Route: 030
     Dates: start: 20091201, end: 20091201
  4. SYNAGIS [Suspect]
     Indication: ANTIVIRAL PROPHYLAXIS
     Route: 030
     Dates: start: 20100112, end: 20100112
  5. SYNAGIS [Suspect]
     Indication: ANTIVIRAL PROPHYLAXIS
     Route: 030
     Dates: start: 20100220, end: 20100220
  6. HYDROCORTISONE SODIUM [Concomitant]
     Dates: start: 20100223, end: 20100225
  7. PREDNISOLONE [Concomitant]
     Dates: start: 20100226
  8. CARDIOACTIVE DRUG [Concomitant]
     Dates: start: 20100311, end: 20100311
  9. MORPHINE [Concomitant]
     Dates: start: 20100311, end: 20100311

REACTIONS (5)
  - Acute respiratory distress syndrome [Fatal]
  - Pulmonary oedema [Fatal]
  - Cardiac failure [Fatal]
  - Respiratory syncytial virus infection [Fatal]
  - Weight decreased [Unknown]
